FAERS Safety Report 5319533-9 (Version None)
Quarter: 2007Q2

REPORT INFORMATION
  Report Type: 
  Country: None (occurrence: None)
  Receive Date: 20070508
  Receipt Date: 20070426
  Transmission Date: 20071010
  Serious: Yes (Hospitalization)
  Sender: FDA-Public Use
  Company Number: US-PFIZER INC-2007034074

PATIENT
  Age: 44 Year
  Sex: Female

DRUGS (3)
  1. LITHIUM CARBONATE [Suspect]
     Indication: BIPOLAR DISORDER
     Dosage: DAILY DOSE:1500MG
  2. CARBAMAZEPINE [Suspect]
     Dosage: DAILY DOSE:600MG
  3. PERPHENAZINE [Suspect]
     Dosage: DAILY DOSE:12MG

REACTIONS (3)
  - CEREBELLAR SYNDROME [None]
  - ERYTHEMA MULTIFORME [None]
  - THERAPEUTIC AGENT TOXICITY [None]
